FAERS Safety Report 7048394-5 (Version None)
Quarter: 2010Q4

REPORT INFORMATION
  Report Type: 
  Country: None (occurrence: None)
  Receive Date: 20101015
  Receipt Date: 20101015
  Transmission Date: 20110411
  Serious: Yes (Other)
  Sender: FDA-Public Use
  Company Number: None

PATIENT
  Sex: Female

DRUGS (1)
  1. AZELASTINE HCL [Suspect]
     Indication: HYPERSENSITIVITY
     Dosage: 2 SPRAYS EACH NOSTRIL 2X A DAY
     Dates: start: 20100819, end: 20100821

REACTIONS (3)
  - CHEMICAL INJURY [None]
  - HEADACHE [None]
  - OROPHARYNGEAL BLISTERING [None]
